FAERS Safety Report 11054003 (Version 1)
Quarter: 2015Q2

REPORT INFORMATION
  Report Type: Spontaneous
  Country: IN (occurrence: IN)
  Receive Date: 20150422
  Receipt Date: 20150422
  Transmission Date: 20150821
  Serious: Yes (Death, Other)
  Sender: FDA-Public Use
  Company Number: PHHY2015IN044756

PATIENT
  Age: 21 Year

DRUGS (6)
  1. LEVOFLOXACIN. [Concomitant]
     Active Substance: LEVOFLOXACIN
     Indication: PYREXIA
     Route: 065
  2. VANCOMYCIN [Concomitant]
     Active Substance: VANCOMYCIN
     Indication: PYREXIA
     Route: 065
  3. LEVOFLOXACIN. [Concomitant]
     Active Substance: LEVOFLOXACIN
     Indication: COUGH
  4. HYDROXYCHLOROQUINE [Suspect]
     Active Substance: HYDROXYCHLOROQUINE
     Indication: PRODUCT USED FOR UNKNOWN INDICATION
     Dosage: 15 MG, QD
     Route: 065
  5. METHOTREXATE [Suspect]
     Active Substance: METHOTREXATE
     Indication: PRODUCT USED FOR UNKNOWN INDICATION
     Dosage: 15 MG, QD
     Route: 065
  6. VANCOMYCIN [Concomitant]
     Active Substance: VANCOMYCIN
     Indication: COUGH

REACTIONS (13)
  - Anaemia [Unknown]
  - Tachycardia [Unknown]
  - Bicytopenia [Unknown]
  - Cough [Unknown]
  - Splenomegaly [Unknown]
  - Hyperferritinaemia [Unknown]
  - Anaplastic large cell lymphoma T- and null-cell types stage III [Fatal]
  - Cardiomegaly [Unknown]
  - Sepsis [Unknown]
  - Dyspnoea [Unknown]
  - Pyrexia [Unknown]
  - Pneumonia [Unknown]
  - Normochromic normocytic anaemia [Unknown]
